FAERS Safety Report 12780129 (Version 1)
Quarter: 2016Q3

REPORT INFORMATION
  Report Type: Spontaneous
  Country: US (occurrence: US)
  Receive Date: 20160926
  Receipt Date: 20160926
  Transmission Date: 20161109
  Serious: No
  Sender: FDA-Public Use
  Company Number: None

PATIENT
  Age: 84 Year
  Sex: Male
  Weight: 70.31 kg

DRUGS (7)
  1. GABAPENTIN. [Concomitant]
     Active Substance: GABAPENTIN
  2. DAPSONE. [Concomitant]
     Active Substance: DAPSONE
  3. CRESTOR [Concomitant]
     Active Substance: ROSUVASTATIN CALCIUM
  4. AMLODIPINE [Concomitant]
     Active Substance: AMLODIPINE BESYLATE
  5. FUROSEMIDE. [Concomitant]
     Active Substance: FUROSEMIDE
  6. QUINAPRIL. [Concomitant]
     Active Substance: QUINAPRIL
  7. CARB/LEVO 50-200 [Suspect]
     Active Substance: CARBIDOPA\LEVODOPA

REACTIONS (4)
  - Confusional state [None]
  - Abnormal sleep-related event [None]
  - Sleep disorder [None]
  - Hallucination, visual [None]

NARRATIVE: CASE EVENT DATE: 201508
